FAERS Safety Report 25779071 (Version 1)
Quarter: 2025Q3

REPORT INFORMATION
  Report Type: Spontaneous
  Country: IL (occurrence: IL)
  Receive Date: 20250909
  Receipt Date: 20250909
  Transmission Date: 20251021
  Serious: Yes (Hospitalization, Other)
  Sender: PFIZER
  Company Number: IL-PFIZER INC-PV202500107111

PATIENT
  Age: 64 Year
  Sex: Female

DRUGS (1)
  1. ELRANATAMAB [Suspect]
     Active Substance: ELRANATAMAB

REACTIONS (10)
  - Cough [Unknown]
  - Pyrexia [Unknown]
  - Cytokine release syndrome [Unknown]
  - Respiratory syncytial virus test positive [Unknown]
  - Lung consolidation [Unknown]
  - Influenza virus test positive [Unknown]
  - Candida test positive [Unknown]
  - Confusional state [Unknown]
  - Rhinovirus infection [Unknown]
  - Sinusitis [Unknown]
